FAERS Safety Report 8375803-1 (Version None)
Quarter: 2012Q2

REPORT INFORMATION
  Report Type: 
  Country: None (occurrence: None)
  Receive Date: 20120518
  Receipt Date: 20120518
  Transmission Date: 20120825
  Serious: Yes (Hospitalization)
  Sender: FDA-Public Use
  Company Number: None

PATIENT
  Age: 60 Year
  Sex: Male
  Weight: 54.6 kg

DRUGS (1)
  1. COUMADIN [Suspect]
     Dosage: 5MG DAILY PO
     Route: 048

REACTIONS (2)
  - INTERNATIONAL NORMALISED RATIO INCREASED [None]
  - CHRONIC OBSTRUCTIVE PULMONARY DISEASE [None]
